FAERS Safety Report 5003728-8 (Version None)
Quarter: 2006Q2

REPORT INFORMATION
  Report Type: 
  Country: None (occurrence: None)
  Receive Date: 20060511
  Receipt Date: 20060504
  Transmission Date: 20061013
  Serious: Yes (Death, Hospitalization)
  Sender: FDA-Public Use
  Company Number: 2006-05-0403

PATIENT
  Age: 18 Year
  Sex: Female

DRUGS (5)
  1. FLUTAMIDE [Suspect]
     Indication: ACNE
     Dosage: SEE IMAGE
     Route: 048
  2. FLUTAMIDE [Suspect]
     Indication: HIRSUTISM
     Dosage: SEE IMAGE
     Route: 048
  3. FLUTAMIDE [Suspect]
     Indication: ACNE
     Dosage: SEE IMAGE
     Route: 048
  4. FLUTAMIDE [Suspect]
     Indication: HIRSUTISM
     Dosage: SEE IMAGE
     Route: 048
  5. ORAL CONTRACEPTIVE (NOS) [Concomitant]

REACTIONS (9)
  - ASTHENIA [None]
  - DIARRHOEA [None]
  - HAEMORRHAGE [None]
  - HEADACHE [None]
  - HEPATITIS CHOLESTATIC [None]
  - LIVER DISORDER [None]
  - LIVER TRANSPLANT [None]
  - SEPSIS [None]
  - TRANSPLANT FAILURE [None]
